FAERS Safety Report 10014585 (Version 1)
Quarter: 2014Q1

REPORT INFORMATION
  Report Type: Report from Study
  Country: AU (occurrence: AU)
  Receive Date: 20140317
  Receipt Date: 20140317
  Transmission Date: 20141002
  Serious: Yes (Congenital Anomaly, Other)
  Sender: FDA-Public Use
  Company Number: AU-UCBSA-114509

PATIENT
  Age: 0 None
  Sex: Female
  Weight: 2.29 kg

DRUGS (3)
  1. KEPPRA [Suspect]
     Indication: EPILEPSY
     Dosage: 1500 MG
     Route: 064
     Dates: start: 20120124
  2. FOLIC ACID [Concomitant]
     Indication: VITAMIN SUPPLEMENTATION
     Dosage: 5 MG
     Route: 064
     Dates: start: 201201
  3. MULTIVITAMINS [Concomitant]
     Route: 064

REACTIONS (3)
  - Fallot^s tetralogy [Unknown]
  - Low birth weight baby [Unknown]
  - Foetal exposure during pregnancy [Recovered/Resolved]
